FAERS Safety Report 18787484 (Version 1)
Quarter: 2021Q1

REPORT INFORMATION
  Report Type: Spontaneous
  Country: IN (occurrence: IN)
  Receive Date: 20210126
  Receipt Date: 20210126
  Transmission Date: 20210419
  Serious: Yes (Death)
  Sender: FDA-Public Use
  Company Number: IN-PFIZER INC-2021065021

PATIENT
  Age: 76 Year
  Sex: Female

DRUGS (1)
  1. PALBACE [Suspect]
     Active Substance: PALBOCICLIB
     Dosage: 125 MG
     Route: 048
     Dates: start: 20200720, end: 20201221

REACTIONS (1)
  - Death [Fatal]
